FAERS Safety Report 6159303-5 (Version None)
Quarter: 2009Q2

REPORT INFORMATION
  Report Type: 
  Country: None (occurrence: None)
  Receive Date: 20090417
  Receipt Date: 20090410
  Transmission Date: 20091009
  Serious: Yes (Death)
  Sender: FDA-Public Use
  Company Number: BE-ABBOTT-09P-013-0567460-00

PATIENT
  Sex: Male

DRUGS (4)
  1. TEVETEN HCT [Suspect]
     Indication: HYPERTENSION
     Route: 048
  2. DAONIL [Concomitant]
     Indication: DIABETES MELLITUS
     Route: 048
  3. GLUCOPHAGE [Concomitant]
     Indication: DIABETES MELLITUS
     Route: 048
  4. PIRACETAM [Concomitant]
     Indication: NEUROPATHY PERIPHERAL
     Route: 048

REACTIONS (3)
  - CARDIOGENIC SHOCK [None]
  - MYOCARDIAL INFARCTION [None]
  - RENAL FAILURE [None]
